FAERS Safety Report 17869496 (Version 1)
Quarter: 2020Q2

REPORT INFORMATION
  Report Type: Spontaneous
  Country: US (occurrence: US)
  Receive Date: 20200608
  Receipt Date: 20200608
  Transmission Date: 20200714
  Serious: No
  Sender: FDA-Public Use
  Company Number: US-AMGEN-USASP2020085031

PATIENT
  Age: 40 Year

DRUGS (1)
  1. VECTIBIX [Suspect]
     Active Substance: PANITUMUMAB
     Indication: DUCTAL ADENOCARCINOMA OF PANCREAS
     Dosage: 100 MILLIGRAM
     Route: 042

REACTIONS (2)
  - Musculoskeletal pain [Unknown]
  - Vomiting [Unknown]
